FAERS Safety Report 21424192 (Version 1)
Quarter: 2022Q4

REPORT INFORMATION
  Report Type: Spontaneous
  Country: TH (occurrence: TH)
  Receive Date: 20221007
  Receipt Date: 20221007
  Transmission Date: 20230113
  Serious: Yes (Hospitalization)
  Sender: FDA-Public Use
  Company Number: TH-MYLANLABS-2022M1112260

PATIENT
  Age: 50 Year
  Sex: Male

DRUGS (14)
  1. GABAPENTIN [Suspect]
     Active Substance: GABAPENTIN
     Indication: Angiostrongylus infection
     Dosage: UNK
     Route: 065
  2. GABAPENTIN [Suspect]
     Active Substance: GABAPENTIN
     Indication: Lung disorder
  3. IBUPROFEN [Suspect]
     Active Substance: IBUPROFEN
     Indication: Angiostrongylus infection
     Dosage: UNK
     Route: 065
  4. IBUPROFEN [Suspect]
     Active Substance: IBUPROFEN
     Indication: Lung disorder
  5. OXYCODONE [Suspect]
     Active Substance: OXYCODONE
     Indication: Angiostrongylus infection
     Dosage: UNK
     Route: 065
  6. OXYCODONE [Suspect]
     Active Substance: OXYCODONE
     Indication: Lung disorder
  7. AMBIEN [Suspect]
     Active Substance: ZOLPIDEM TARTRATE
     Indication: Angiostrongylus infection
     Dosage: UNK
     Route: 065
  8. AMBIEN [Suspect]
     Active Substance: ZOLPIDEM TARTRATE
     Indication: Lung disorder
  9. VITAMIN C [Suspect]
     Active Substance: ASCORBIC ACID
     Indication: Angiostrongylus infection
     Dosage: UNK, 25 TO 50MG
     Route: 042
  10. VITAMIN C [Suspect]
     Active Substance: ASCORBIC ACID
     Indication: Lung disorder
  11. GLUTATHIONE [Suspect]
     Active Substance: GLUTATHIONE
     Indication: Angiostrongylus infection
     Dosage: 1000 MILLIGRAM
     Route: 042
  12. GLUTATHIONE [Suspect]
     Active Substance: GLUTATHIONE
     Indication: Lung disorder
  13. LECITHIN [Suspect]
     Active Substance: LECITHIN
     Indication: Angiostrongylus infection
     Dosage: UNK
     Route: 042
  14. LECITHIN [Suspect]
     Active Substance: LECITHIN
     Indication: Lung disorder

REACTIONS (2)
  - Drug ineffective for unapproved indication [Unknown]
  - Off label use [Unknown]
